FAERS Safety Report 11021376 (Version 1)
Quarter: 2015Q2

REPORT INFORMATION
  Report Type: Spontaneous
  Country: DE (occurrence: DE)
  Receive Date: 20150413
  Receipt Date: 20150413
  Transmission Date: 20150821
  Serious: Yes (Other)
  Sender: FDA-Public Use
  Company Number: DE-SA-2015SA008768

PATIENT
  Age: 64 Year
  Sex: Male
  Weight: 82 kg

DRUGS (9)
  1. AUBAGIO [Suspect]
     Active Substance: TERIFLUNOMIDE
     Indication: MULTIPLE SCLEROSIS
     Route: 048
     Dates: start: 20131108, end: 20141128
  2. BISOPROLOL [Concomitant]
     Active Substance: BISOPROLOL
  3. ASPIRIN. [Concomitant]
     Active Substance: ASPIRIN
     Dosage: DOSE; 1X1
  4. CANDESARTAN CILEXETIL. [Concomitant]
     Active Substance: CANDESARTAN CILEXETIL
  5. DEKRISTOL [Concomitant]
     Active Substance: CHOLECALCIFEROL
  6. AUBAGIO [Suspect]
     Active Substance: TERIFLUNOMIDE
     Indication: MULTIPLE SCLEROSIS
     Route: 048
     Dates: start: 20131108, end: 20141128
  7. MINERALS NOS/VITAMINS NOS [Concomitant]
  8. ATORVASTATIN [Concomitant]
     Active Substance: ATORVASTATIN
  9. FAMPYRA [Concomitant]
     Active Substance: DALFAMPRIDINE

REACTIONS (12)
  - Sensory disturbance [Not Recovered/Not Resolved]
  - Hyporeflexia [Unknown]
  - Paraesthesia [Not Recovered/Not Resolved]
  - Diarrhoea [Not Recovered/Not Resolved]
  - Paraparesis [Unknown]
  - Carpal tunnel syndrome [Unknown]
  - Micturition disorder [Unknown]
  - Axonal neuropathy [Recovered/Resolved]
  - Feeling hot [Unknown]
  - Paraesthesia [Unknown]
  - Sensory loss [Unknown]
  - Hypoaesthesia [Unknown]

NARRATIVE: CASE EVENT DATE: 201410
